FAERS Safety Report 6999835-0 (Version None)
Quarter: 2010Q3

REPORT INFORMATION
  Report Type: 
  Country: None (occurrence: None)
  Receive Date: 20100920
  Receipt Date: 20100412
  Transmission Date: 20110219
  Serious: Yes (Other)
  Sender: FDA-Public Use
  Company Number: US-ASTRAZENECA-2009UW20614

PATIENT
  Sex: Male

DRUGS (9)
  1. SEROQUEL [Suspect]
     Dosage: 50 MG TO 300 MG
     Route: 048
     Dates: start: 20050228
  2. DEPAKOTE ER [Concomitant]
     Dates: start: 20050228
  3. DEPAKOTE ER [Concomitant]
     Dates: start: 20060420
  4. ZIAGEN [Concomitant]
     Dosage: 300 MG TO 600 MG
     Dates: start: 20050228
  5. VIREAD [Concomitant]
     Dates: start: 20050228
  6. BENZTROPINE MESYLATE [Concomitant]
     Dates: start: 20050228
  7. WELLBUTRIN XL [Concomitant]
     Route: 048
     Dates: start: 20060803
  8. RISPERDAL [Concomitant]
     Dosage: 2 MG TO 3 MG
     Route: 048
     Dates: start: 20060420
  9. METOPROLOL [Concomitant]
     Route: 048
     Dates: start: 20060420

REACTIONS (4)
  - DIABETES MELLITUS [None]
  - DIABETES MELLITUS INADEQUATE CONTROL [None]
  - DIABETIC KETOACIDOSIS [None]
  - PANCREATITIS [None]
